FAERS Safety Report 24531787 (Version 1)
Quarter: 2024Q4

REPORT INFORMATION
  Report Type: Spontaneous
  Country: US (occurrence: US)
  Receive Date: 20241022
  Receipt Date: 20241022
  Transmission Date: 20250115
  Serious: No
  Sender: APOTEX
  Company Number: US-APOTEX-2024AP012213

PATIENT

DRUGS (1)
  1. LENALIDOMIDE [Suspect]
     Active Substance: LENALIDOMIDE
     Indication: Myelodysplastic syndrome
     Dosage: UNK (5 MG DAILY CONTINUOUSLY TO 25 MG DAILY FOR 21 DAYS OF A 28-DAY TREATMENT CYCLE)
     Route: 065

REACTIONS (1)
  - Eosinophilia [Recovered/Resolved]
